FAERS Safety Report 10008976 (Version 2)
Quarter: 2014Q1

REPORT INFORMATION
  Report Type: Spontaneous
  Country: US (occurrence: US)
  Receive Date: 20140313
  Receipt Date: 20140313
  Transmission Date: 20141002
  Serious: Yes (Other)
  Sender: FDA-Public Use
  Company Number: US-INCYTE CORPORATION-2012IN001011

PATIENT
  Age: 80 Year
  Sex: Male

DRUGS (7)
  1. JAKAFI [Suspect]
     Indication: MYELOFIBROSIS
     Dosage: 10 MG, BID
     Route: 048
     Dates: start: 20120409, end: 20120507
  2. JAKAFI [Suspect]
     Dosage: 10 MG, QD
     Route: 048
     Dates: start: 20120516
  3. PROCRIT [Concomitant]
     Dosage: NOT SPECIFIED, EVERY 3 WEEKW
  4. LIPITOR [Concomitant]
     Dosage: 10 MG, QD
  5. TEMAZEPAM [Concomitant]
     Dosage: 15 MG, HS
  6. REQUIP [Concomitant]
  7. FUROSEMIDE [Concomitant]
     Dosage: 40 MG, UNK

REACTIONS (2)
  - Haemoglobin decreased [Unknown]
  - Platelet count decreased [Unknown]
